FAERS Safety Report 10101449 (Version 1)
Quarter: 2014Q2

REPORT INFORMATION
  Report Type: Spontaneous
  Country: US (occurrence: US)
  Receive Date: 20140424
  Receipt Date: 20140424
  Transmission Date: 20141212
  Serious: No
  Sender: FDA-Public Use
  Company Number: US-BAYER-2014-048081

PATIENT
  Age: 79 Year
  Sex: Male

DRUGS (3)
  1. LEVITRA [Suspect]
     Indication: ERECTILE DYSFUNCTION
     Dosage: 20 MG, UNK
     Route: 048
     Dates: start: 201401, end: 201402
  2. AVODART [Concomitant]
     Dosage: UNK UNK, QD
  3. ALFUZOSIN [Concomitant]
     Dosage: UNK UNK, QD

REACTIONS (2)
  - Drug ineffective [None]
  - Drug ineffective [None]
